FAERS Safety Report 4346190-0 (Version None)
Quarter: 2004Q1

REPORT INFORMATION
  Report Type: 
  Country: None (occurrence: None)
  Receive Date: 20040325
  Receipt Date: 20040226
  Transmission Date: 20041129
  Serious: No
  Sender: FDA-Public Use
  Company Number: USA040156024

PATIENT
  Age: 80 Year
  Sex: Female

DRUGS (2)
  1. FORTEO [Suspect]
     Dates: start: 20031207
  2. CALCIUM [Concomitant]

REACTIONS (5)
  - ARTHRALGIA [None]
  - CATARACT [None]
  - HEADACHE [None]
  - PAIN IN EXTREMITY [None]
  - TOOTH EXTRACTION [None]
